FAERS Safety Report 7560894-8 (Version None)
Quarter: 2011Q2

REPORT INFORMATION
  Report Type: 
  Country: None (occurrence: None)
  Receive Date: 20110621
  Receipt Date: 20101207
  Transmission Date: 20111010
  Serious: No
  Sender: FDA-Public Use
  Company Number: US-ASTRAZENECA-2010SE19294

PATIENT
  Age: 63 Year
  Sex: Female
  Weight: 59 kg

DRUGS (5)
  1. TOPROL-XL [Suspect]
     Route: 048
  2. SEROQUEL [Suspect]
     Dosage: DAILY
     Route: 048
     Dates: start: 20100101
  3. CRESTOR [Suspect]
     Route: 048
  4. ATACAND [Suspect]
     Route: 048
  5. NEXIUM [Suspect]
     Route: 048

REACTIONS (3)
  - CONFUSIONAL STATE [None]
  - HYPERSOMNIA [None]
  - UPPER LIMB FRACTURE [None]
